FAERS Safety Report 6760974-0 (Version None)
Quarter: 2010Q2

REPORT INFORMATION
  Report Type: 
  Country: None (occurrence: None)
  Receive Date: 20100608
  Receipt Date: 20100602
  Transmission Date: 20101027
  Serious: Yes (Congenital Anomaly)
  Sender: FDA-Public Use
  Company Number: A0679361A

PATIENT
  Sex: Male

DRUGS (7)
  1. PAXIL [Suspect]
     Indication: DEPRESSION
     Dosage: 40MG PER DAY
     Dates: start: 19940101, end: 20060101
  2. PAROXETINE HCL [Suspect]
     Indication: DRUG USE FOR UNKNOWN INDICATION
     Dosage: 20MG PER DAY
     Dates: start: 19940101, end: 20060101
  3. TEGRETOL [Concomitant]
  4. DEPAKOTE [Concomitant]
  5. PRENATAL VITAMINS [Concomitant]
  6. FOLIC ACID [Concomitant]
  7. TRILEPTAL [Concomitant]

REACTIONS (3)
  - ATRIAL SEPTAL DEFECT [None]
  - DRUG EXPOSURE DURING PREGNANCY [None]
  - PULMONARY ARTERIAL HYPERTENSION [None]
